FAERS Safety Report 13143392 (Version 1)
Quarter: 2017Q1

REPORT INFORMATION
  Report Type: Spontaneous
  Country: US (occurrence: US)
  Receive Date: 20170124
  Receipt Date: 20170124
  Transmission Date: 20170428
  Serious: Yes (Disabling, Other)
  Sender: FDA-Public Use
  Company Number: US-009507513-1701USA008837

PATIENT
  Sex: Female

DRUGS (1)
  1. FOSAMAX [Suspect]
     Active Substance: ALENDRONATE SODIUM
     Indication: PRODUCT USED FOR UNKNOWN INDICATION
     Dosage: UNK
     Route: 048
     Dates: start: 200310, end: 201308

REACTIONS (14)
  - Dyspepsia [Unknown]
  - Swelling [Unknown]
  - Pain [Unknown]
  - Bone pain [Unknown]
  - Femur fracture [Unknown]
  - Femur fracture [Unknown]
  - Arthralgia [Unknown]
  - Chest pain [Unknown]
  - Dysphagia [Unknown]
  - Hypoaesthesia [Unknown]
  - Osteoporosis [Unknown]
  - Osteonecrosis of jaw [Unknown]
  - Myalgia [Unknown]
  - Pain in jaw [Unknown]

NARRATIVE: CASE EVENT DATE: 20131230
